FAERS Safety Report 18325210 (Version 1)
Quarter: 2020Q3

REPORT INFORMATION
  Report Type: Spontaneous
  Country: US (occurrence: US)
  Receive Date: 20200929
  Receipt Date: 20200929
  Transmission Date: 20201103
  Serious: No
  Sender: FDA-Public Use
  Company Number: US-HQ SPECIALTY-US-2020INT000080

PATIENT

DRUGS (1)
  1. MAGNESIUM SULFATE IN WATER FOR INJECTION [Suspect]
     Active Substance: MAGNESIUM SULFATE HEPTAHYDRATE
     Indication: PRODUCT USED FOR UNKNOWN INDICATION
     Dosage: UNK
     Route: 065

REACTIONS (1)
  - Burning sensation [Unknown]
